FAERS Safety Report 4868716-0 (Version None)
Quarter: 2005Q4

REPORT INFORMATION
  Report Type: 
  Country: None (occurrence: None)
  Receive Date: 20051223
  Receipt Date: 20051215
  Transmission Date: 20060501
  Serious: Yes (Other)
  Sender: FDA-Public Use
  Company Number: 2005170036

PATIENT
  Age: 34 Year
  Sex: Male

DRUGS (1)
  1. CELEBREX [Suspect]
     Indication: HEADACHE
     Dosage: 100 MG (100 MG, ONCE), ORAL
     Route: 048

REACTIONS (2)
  - BRADYCARDIA [None]
  - HEADACHE [None]
